FAERS Safety Report 8317558-2 (Version None)
Quarter: 2012Q2

REPORT INFORMATION
  Report Type: 
  Country: None (occurrence: None)
  Receive Date: 20120427
  Receipt Date: 20120425
  Transmission Date: 20120825
  Serious: Yes (Death)
  Sender: FDA-Public Use
  Company Number: PHHY2011IT61401

PATIENT
  Sex: Male

DRUGS (2)
  1. VOLTAREN [Suspect]
     Indication: BACK PAIN
     Dosage: 1 DF, QD (ONE POSOLOGICAL UNIT)
     Route: 054
     Dates: start: 20040611, end: 20040613
  2. COXXIL [Concomitant]

REACTIONS (5)
  - GASTRIC CANCER [None]
  - HAEMATEMESIS [None]
  - CARDIAC ARREST [None]
  - HAEMORRHAGE [None]
  - GASTROINTESTINAL ULCER PERFORATION [None]
